FAERS Safety Report 23689799 (Version 1)
Quarter: 2024Q1

REPORT INFORMATION
  Report Type: Spontaneous
  Country: CN (occurrence: CN)
  Receive Date: 20240331
  Receipt Date: 20240331
  Transmission Date: 20240409
  Serious: Yes (Hospitalization)
  Sender: FDA-Public Use
  Company Number: CN-BEIGENE-BGN-2024-004511

PATIENT

DRUGS (2)
  1. TISLELIZUMAB [Suspect]
     Active Substance: TISLELIZUMAB
     Indication: Hepatic cancer
     Dosage: 200 MILLIGRAM, Q3WK
     Route: 041
     Dates: start: 20230809
  2. REGORAFENIB [Concomitant]
     Active Substance: REGORAFENIB
     Indication: Hepatic cancer
     Dosage: 40 MILLIGRAM
     Route: 048
     Dates: start: 20231123, end: 20240318

REACTIONS (3)
  - Immune-mediated dermatitis [Recovering/Resolving]
  - Lip ulceration [Recovering/Resolving]
  - Mouth ulceration [Recovering/Resolving]

NARRATIVE: CASE EVENT DATE: 20240210
